FAERS Safety Report 6591916-9 (Version None)
Quarter: 2010Q1

REPORT INFORMATION
  Report Type: 
  Country: None (occurrence: None)
  Receive Date: 20100221
  Receipt Date: 20090821
  Transmission Date: 20100710
  Serious: Yes (Hospitalization, Other)
  Sender: FDA-Public Use
  Company Number: US-ALLERGAN-0909160US

PATIENT
  Age: 51 Year
  Sex: Female

DRUGS (24)
  1. BOTOX [Suspect]
     Indication: MUSCLE SPASMS
     Dosage: 50 UNITS, SINGLE
     Route: 030
     Dates: start: 20090526, end: 20090526
  2. BOTOX [Suspect]
     Indication: DYSTONIA
  3. BOTOX [Suspect]
     Indication: BACK PAIN
  4. BOTOX [Suspect]
     Indication: ARTHRALGIA
  5. BOTOX [Suspect]
     Indication: ARTHROPATHY
  6. BOTOX [Suspect]
  7. DIFLUCAN [Concomitant]
  8. LASIX [Concomitant]
  9. LOPRESSOR [Concomitant]
  10. DOXYCYCLINE [Concomitant]
  11. LEVOXYL [Concomitant]
  12. CYMBALTA [Concomitant]
  13. POTASSIUM [Concomitant]
  14. ZOCOR [Concomitant]
  15. LOPID [Concomitant]
  16. PRILOSEC [Concomitant]
  17. NEURONTIN [Concomitant]
  18. ZANAFLEX [Concomitant]
  19. VITAMIN C [Concomitant]
  20. VITAMIN D [Concomitant]
  21. LORTAB [Concomitant]
  22. DURAGESIC-100 [Concomitant]
  23. ZOFRAN [Concomitant]
  24. XANAX [Concomitant]

REACTIONS (5)
  - ANAPHYLACTIC REACTION [None]
  - BLOOD CREATINE PHOSPHOKINASE MB INCREASED [None]
  - DYSPHAGIA [None]
  - THROAT TIGHTNESS [None]
  - WRONG TECHNIQUE IN DRUG USAGE PROCESS [None]
